FAERS Safety Report 7967354-0 (Version None)
Quarter: 2011Q4

REPORT INFORMATION
  Report Type: 
  Country: None (occurrence: None)
  Receive Date: 20111209
  Receipt Date: 20111205
  Transmission Date: 20120403
  Serious: Yes (Death)
  Sender: FDA-Public Use
  Company Number: CN-JNJFOC-20111203390

PATIENT
  Age: 35 Year
  Sex: Female

DRUGS (4)
  1. INVEGA [Suspect]
     Indication: HALLUCINATION
     Route: 048
     Dates: start: 20110601, end: 20110901
  2. LEXAPRO [Concomitant]
     Indication: DEPRESSION
     Route: 048
     Dates: start: 20110601, end: 20110920
  3. SERTRALINE HYDROCHLORIDE [Suspect]
     Indication: DEPRESSION
     Route: 048
     Dates: start: 20110920, end: 20111101
  4. INVEGA [Suspect]
     Indication: DEPRESSION
     Route: 048
     Dates: start: 20110601, end: 20110901

REACTIONS (1)
  - COMPLETED SUICIDE [None]
